FAERS Safety Report 5144805-0 (Version None)
Quarter: 2006Q4

REPORT INFORMATION
  Report Type: 
  Country: None (occurrence: None)
  Receive Date: 20061103
  Receipt Date: 20061103
  Transmission Date: 20070319
  Serious: Yes (Other)
  Sender: FDA-Public Use
  Company Number: None

PATIENT
  Age: 47 Year
  Sex: Male

DRUGS (2)
  1. VINORELBINE [Suspect]
     Dosage: 20 MG/M2 IV
     Route: 042
     Dates: start: 20061020
  2. LAPATINIB [Suspect]
     Dosage: 1000 MG/DAY

REACTIONS (5)
  - CONDITION AGGRAVATED [None]
  - DYSPNOEA [None]
  - LUNG INFECTION [None]
  - LUNG INFILTRATION [None]
  - PAIN [None]
